FAERS Safety Report 21697928 (Version 1)
Quarter: 2022Q4

REPORT INFORMATION
  Report Type: Spontaneous
  Country: US (occurrence: None)
  Receive Date: 20221208
  Receipt Date: 20221208
  Transmission Date: 20230113
  Serious: No
  Sender: FDA-Public Use
  Company Number: 2022A384942

PATIENT
  Age: 16773 Day
  Sex: Female

DRUGS (1)
  1. FASENRA [Suspect]
     Active Substance: BENRALIZUMAB
     Indication: Asthma
     Dosage: 30MG/ML EIGHT TIMES A DAY
     Route: 058
     Dates: start: 2021

REACTIONS (10)
  - Diabetes mellitus [Unknown]
  - Injection site haemorrhage [Unknown]
  - Injection site swelling [Unknown]
  - Myalgia [Unknown]
  - Myalgia [Unknown]
  - Device issue [Unknown]
  - Device delivery system issue [Unknown]
  - Device temperature issue [Unknown]
  - Inappropriate schedule of product administration [Unknown]
  - Intentional device misuse [Unknown]

NARRATIVE: CASE EVENT DATE: 20221116
